FAERS Safety Report 17182024 (Version 1)
Quarter: 2019Q4

REPORT INFORMATION
  Report Type: Spontaneous
  Country: CN (occurrence: CN)
  Receive Date: 20191220
  Receipt Date: 20191220
  Transmission Date: 20200122
  Serious: Yes (Other)
  Sender: FDA-Public Use
  Company Number: CN-ELI_LILLY_AND_COMPANY-CN201912004667

PATIENT
  Age: 59 Year
  Sex: Female
  Weight: 50.5 kg

DRUGS (3)
  1. HUMALOG [Suspect]
     Active Substance: INSULIN LISPRO
     Indication: DIABETES MELLITUS
     Dosage: 15 INTERNATIONAL UNIT, DAILY
     Route: 058
     Dates: start: 20191125
  2. HUMALOG [Suspect]
     Active Substance: INSULIN LISPRO
     Dosage: 5 INTERNATIONAL UNIT, BEFORE THREE MEALS
     Route: 058
     Dates: start: 20191125
  3. HUMALOG [Suspect]
     Active Substance: INSULIN LISPRO
     Dosage: 5 INTERNATIONAL UNIT, BEFORE THREE MEALS
     Route: 058

REACTIONS (2)
  - Hypoglycaemia [Recovered/Resolved]
  - Ketoacidosis [Recovering/Resolving]

NARRATIVE: CASE EVENT DATE: 20191129
